FAERS Safety Report 9426451 (Version 1)
Quarter: 2013Q3

REPORT INFORMATION
  Report Type: Spontaneous
  Country: US (occurrence: None)
  Receive Date: 20130729
  Receipt Date: 20130729
  Transmission Date: 20140515
  Serious: Yes (Other)
  Sender: FDA-Public Use
  Company Number: None

PATIENT
  Sex: 0

DRUGS (1)
  1. FENTANYL TRANSDERMAL SYSTEM [Suspect]
     Dosage: LOT# 6D0144?EXP DATE : DEC 2014
     Dates: start: 201306, end: 20130611

REACTIONS (5)
  - Nausea [None]
  - Dizziness [None]
  - Abdominal discomfort [None]
  - Malaise [None]
  - Dyspnoea [None]
